FAERS Safety Report 8547536-X (Version None)
Quarter: 2012Q3

REPORT INFORMATION
  Report Type: 
  Country: None (occurrence: None)
  Receive Date: 20120727
  Receipt Date: 20120329
  Transmission Date: 20120928
  Serious: No
  Sender: FDA-Public Use
  Company Number: US-ASTRAZENECA-2012SE21218

PATIENT
  Age: 32 Year
  Sex: Female
  Weight: 158.8 kg

DRUGS (4)
  1. SEROQUEL [Suspect]
     Indication: BIPOLAR DISORDER
     Route: 048
  2. SEROQUEL [Suspect]
     Route: 048
  3. ABILIFY [Concomitant]
  4. WELLBUTRIN [Suspect]
     Indication: DEPRESSION
     Route: 065

REACTIONS (5)
  - AGGRESSION [None]
  - DEPRESSION [None]
  - INTENTIONAL DRUG MISUSE [None]
  - MALAISE [None]
  - BALANCE DISORDER [None]
